FAERS Safety Report 15699097 (Version 1)
Quarter: 2018Q4

REPORT INFORMATION
  Report Type: Spontaneous
  Country: US (occurrence: US)
  Receive Date: 20181207
  Receipt Date: 20181207
  Transmission Date: 20190205
  Serious: Yes (Other)
  Sender: FDA-Public Use
  Company Number: None

PATIENT
  Age: 45 Year
  Sex: Female
  Weight: 112.5 kg

DRUGS (8)
  1. TRULICITY [Suspect]
     Active Substance: DULAGLUTIDE
     Indication: DIABETES MELLITUS
     Dosage: ?          QUANTITY:1 INJECTION(S);OTHER FREQUENCY:WEEK;?
     Route: 058
     Dates: start: 20181121, end: 20181206
  2. ATEOVASTANIN [Concomitant]
  3. HUMALIN [Concomitant]
     Active Substance: INSULIN NOS
  4. TYLENOL [Concomitant]
     Active Substance: ACETAMINOPHEN
  5. LEVOTHYROXIN [Concomitant]
     Active Substance: LEVOTHYROXINE
  6. ZYRTEC [Concomitant]
     Active Substance: CETIRIZINE HYDROCHLORIDE
  7. OMOPRAZAL [Concomitant]
  8. QUINACRINE [Concomitant]
     Active Substance: QUINACRINE

REACTIONS (4)
  - Abdominal pain [None]
  - Diarrhoea [None]
  - Chest pain [None]
  - Vomiting [None]

NARRATIVE: CASE EVENT DATE: 20181123
